FAERS Safety Report 21072897 (Version 2)
Quarter: 2022Q3

REPORT INFORMATION
  Report Type: Spontaneous
  Country: BE (occurrence: BE)
  Receive Date: 20220712
  Receipt Date: 20220728
  Transmission Date: 20221026
  Serious: No
  Sender: FDA-Public Use
  Company Number: BE-SA-SAC20220506000018

PATIENT
  Sex: Male

DRUGS (1)
  1. ENOXAPARIN SODIUM [Suspect]
     Active Substance: ENOXAPARIN SODIUM
     Dosage: STRENGTH: 40 MG/0.4 ML

REACTIONS (2)
  - Device malfunction [Unknown]
  - No adverse event [Unknown]
